FAERS Safety Report 24975785 (Version 1)
Quarter: 2025Q1

REPORT INFORMATION
  Report Type: Spontaneous
  Country: FR (occurrence: FR)
  Receive Date: 20250217
  Receipt Date: 20250217
  Transmission Date: 20250409
  Serious: Yes (Hospitalization, Other)
  Sender: AMGEN
  Company Number: FR-AMGEN-FRASP2025028600

PATIENT
  Age: 70 Year
  Sex: Male

DRUGS (2)
  1. ECULIZUMAB [Suspect]
     Active Substance: ECULIZUMAB
     Indication: Thrombotic microangiopathy
     Route: 065
  2. LUTETIUM LU-177 [Concomitant]
     Active Substance: LUTETIUM LU-177
     Dates: start: 202302

REACTIONS (3)
  - End stage renal disease [Unknown]
  - Drug effective for unapproved indication [Unknown]
  - Off label use [Unknown]
